FAERS Safety Report 8589057-4 (Version None)
Quarter: 2012Q3

REPORT INFORMATION
  Report Type: 
  Country: None (occurrence: None)
  Receive Date: 20120813
  Receipt Date: 20120806
  Transmission Date: 20120928
  Serious: Yes (Death)
  Sender: FDA-Public Use
  Company Number: US-BAYER-2012-080933

PATIENT
  Sex: Male

DRUGS (1)
  1. TRASYLOL [Suspect]
     Dosage: UNK
     Route: 042
     Dates: start: 20050421

REACTIONS (2)
  - CARDIOMYOPATHY [None]
  - MULTI-ORGAN FAILURE [None]
